FAERS Safety Report 9839333 (Version 1)
Quarter: 2014Q1

REPORT INFORMATION
  Report Type: Report from Study
  Country: CN (occurrence: CN)
  Receive Date: 20140123
  Receipt Date: 20140123
  Transmission Date: 20141002
  Serious: Yes (Other)
  Sender: FDA-Public Use
  Company Number: CN-BAXTER-2014BAX003498

PATIENT
  Sex: Female

DRUGS (3)
  1. CYTOXAN_CYCLOPHOSPHAMIDE, MONOHYDRATE 1.00 G_POWDER FOR SOLUTION FOR I [Suspect]
     Indication: BREAST CANCER
     Dosage: ON DAY 1
     Route: 065
  2. DOCETAXEL [Suspect]
     Indication: BREAST CANCER
     Dosage: ON DAY 1
     Route: 065
  3. DEXAMETHASONE [Suspect]
     Indication: PREMEDICATION
     Dosage: PREMEDICATION FOR 3 DAYS
     Route: 048

REACTIONS (1)
  - Disease progression [Unknown]
